FAERS Safety Report 25682621 (Version 3)
Quarter: 2025Q3

REPORT INFORMATION
  Report Type: Spontaneous
  Country: CH (occurrence: CH)
  Receive Date: 20250814
  Receipt Date: 20250829
  Transmission Date: 20251021
  Serious: Yes (Other)
  Sender: TEVA
  Company Number: CH-TEVA-VS-3347390

PATIENT
  Sex: Female

DRUGS (1)
  1. METHOTREXATE [Suspect]
     Active Substance: METHOTREXATE
     Indication: Ectopic pregnancy
     Route: 065
     Dates: start: 20250514, end: 20250514

REACTIONS (7)
  - Abortion spontaneous [Unknown]
  - Dizziness [Unknown]
  - Vaginal haemorrhage [Unknown]
  - Blood pressure decreased [Unknown]
  - Maternal exposure before pregnancy [Unknown]
  - Malaise [Unknown]
  - Anaemia [Unknown]

NARRATIVE: CASE EVENT DATE: 20250101
